FAERS Safety Report 17230743 (Version 2)
Quarter: 2024Q1

REPORT INFORMATION
  Report Type: Spontaneous
  Country: US (occurrence: US)
  Receive Date: 20200103
  Receipt Date: 20240101
  Transmission Date: 20240410
  Serious: No
  Sender: FDA-Public Use
  Company Number: US-JNJFOC-20200103376

PATIENT
  Sex: Male

DRUGS (1)
  1. RISPERDAL [Suspect]
     Active Substance: RISPERIDONE
     Indication: Product used for unknown indication
     Dosage: VARYING DOSES OF 0.5 MG AND 1 MG WITH FREQUENCIES OF ONCE AND TWICE DAILY
     Route: 048
     Dates: start: 2002, end: 2006

REACTIONS (2)
  - Emotional disorder [Unknown]
  - Gynaecomastia [Unknown]
